FAERS Safety Report 21960580 (Version 2)
Quarter: 2023Q1

REPORT INFORMATION
  Report Type: Spontaneous
  Country: US (occurrence: US)
  Receive Date: 20230207
  Receipt Date: 20230218
  Transmission Date: 20230418
  Serious: Yes (Other)
  Sender: FDA-Public Use
  Company Number: US-JNJFOC-20230162482

PATIENT
  Age: 40 Year
  Sex: Female

DRUGS (7)
  1. ELMIRON [Suspect]
     Active Substance: PENTOSAN POLYSULFATE SODIUM
     Indication: Cystitis interstitial
     Dosage: ON AND OFF FOR APPROXIMATELY 21 YEARS 100 MG DAILY
     Route: 048
     Dates: start: 199907, end: 200301
  2. ELMIRON [Suspect]
     Active Substance: PENTOSAN POLYSULFATE SODIUM
     Dosage: 100 MG DAILY
     Route: 048
     Dates: start: 201601, end: 202008
  3. OXYBUTYNIN [Concomitant]
     Active Substance: OXYBUTYNIN
     Indication: Hypertonic bladder
     Dates: start: 20000201
  4. LEVOTHYROXINE [Concomitant]
     Active Substance: LEVOTHYROXINE
     Indication: Thyroid disorder
     Dates: start: 19980901
  5. NITROFURANTOIN [Concomitant]
     Active Substance: NITROFURANTOIN
     Indication: Cystitis
     Dates: start: 20120101
  6. AMBIEN [Concomitant]
     Active Substance: ZOLPIDEM TARTRATE
     Indication: Insomnia
     Dates: start: 20120101
  7. NALTREXONE [Concomitant]
     Active Substance: NALTREXONE
     Indication: Multiple sclerosis
     Dates: start: 20160601

REACTIONS (9)
  - Retinal injury [Not Recovered/Not Resolved]
  - Neovascular age-related macular degeneration [Not Recovered/Not Resolved]
  - Cataract nuclear [Unknown]
  - Myopia [Not Recovered/Not Resolved]
  - Vitreous adhesions [Not Recovered/Not Resolved]
  - Maculopathy [Not Recovered/Not Resolved]
  - Depression [Unknown]
  - Treatment noncompliance [Unknown]
  - Off label use [Unknown]

NARRATIVE: CASE EVENT DATE: 19990701
